FAERS Safety Report 13708445 (Version 1)
Quarter: 2017Q2

REPORT INFORMATION
  Report Type: Spontaneous
  Country: US (occurrence: US)
  Receive Date: 20170630
  Receipt Date: 20170630
  Transmission Date: 20170830
  Serious: No
  Sender: FDA-Public Use
  Company Number: US-GLAXOSMITHKLINE-US2017099738

PATIENT
  Age: 63 Year
  Sex: Female

DRUGS (1)
  1. WELLBUTRIN SR [Suspect]
     Active Substance: BUPROPION HYDROCHLORIDE
     Indication: THYROID DISORDER
     Route: 048
     Dates: start: 201703

REACTIONS (4)
  - Feeling jittery [Recovered/Resolved]
  - Insomnia [Recovered/Resolved]
  - Sensory processing disorder [Unknown]
  - Autoscopy [Recovered/Resolved]

NARRATIVE: CASE EVENT DATE: 201703
